FAERS Safety Report 17841273 (Version 1)
Quarter: 2020Q2

REPORT INFORMATION
  Report Type: Spontaneous
  Country: CH (occurrence: CH)
  Receive Date: 20200529
  Receipt Date: 20200529
  Transmission Date: 20200714
  Serious: Yes (Other)
  Sender: FDA-Public Use
  Company Number: CH-ELI_LILLY_AND_COMPANY-CH202005008286

PATIENT
  Age: 81 Year
  Sex: Male

DRUGS (1)
  1. ZYPREXA [Suspect]
     Active Substance: OLANZAPINE
     Indication: PSYCHOTIC DISORDER
     Dosage: UNK, UNKNOWN
     Route: 065

REACTIONS (7)
  - Parkinson^s disease [Unknown]
  - Tremor [Unknown]
  - Fatigue [Unknown]
  - Dry mouth [Unknown]
  - Libido decreased [Unknown]
  - Constipation [Unknown]
  - Weight increased [Unknown]
